FAERS Safety Report 22654099 (Version 1)
Quarter: 2023Q2

REPORT INFORMATION
  Report Type: Spontaneous
  Country: US (occurrence: US)
  Receive Date: 20230629
  Receipt Date: 20230629
  Transmission Date: 20230721
  Serious: No
  Sender: FDA-Public Use
  Company Number: US-SA-2023SA196994

PATIENT
  Sex: Female

DRUGS (1)
  1. DUPIXENT [Suspect]
     Active Substance: DUPILUMAB
     Dosage: 300 MG,FREQUENCY-OTHER
     Route: 058

REACTIONS (3)
  - Dry skin [Unknown]
  - Skin swelling [Unknown]
  - Arthralgia [Unknown]
